FAERS Safety Report 22270176 (Version 1)
Quarter: 2023Q2

REPORT INFORMATION
  Report Type: Spontaneous
  Country: US (occurrence: None)
  Receive Date: 20230428
  Receipt Date: 20230428
  Transmission Date: 20230721
  Serious: Yes (Hospitalization)
  Sender: FDA-Public Use
  Company Number: None

PATIENT
  Age: 37 Year
  Sex: Female
  Weight: 95.71 kg

DRUGS (17)
  1. CAPECITABINE [Suspect]
     Active Substance: CAPECITABINE
     Indication: Breast cancer female
     Dosage: OTHER FREQUENCY : BID 14D 7D OFF;?
     Route: 048
  2. ARIPIPRAZOLE [Concomitant]
     Active Substance: ARIPIPRAZOLE
  3. DESMOPRESSIN [Concomitant]
     Active Substance: DESMOPRESSIN
  4. DOCUSATE [Concomitant]
     Active Substance: DOCUSATE
  5. ENOXAPARIN [Concomitant]
  6. GABAPENTIN [Concomitant]
  7. LACOSAMIDE [Concomitant]
     Active Substance: LACOSAMIDE
  8. LEVOTHYROXINE [Concomitant]
  9. Melantonin [Concomitant]
  10. MICONAZOLE [Concomitant]
  11. MIRALAX [Concomitant]
     Active Substance: POLYETHYLENE GLYCOL 3350
  12. MIRTAZAPINE [Concomitant]
  13. OXYCODONE AND ACETAMINOPHEN [Concomitant]
  14. PREDNISONE [Concomitant]
  15. SENNA [Concomitant]
     Active Substance: SENNA LEAF\SENNOSIDES\SENNOSIDES A AND B
  16. Tylenol 8 [Concomitant]
  17. ZOFRAN [Concomitant]
     Active Substance: ONDANSETRON HYDROCHLORIDE

REACTIONS (1)
  - Seizure [None]
